FAERS Safety Report 16235649 (Version 1)
Quarter: 2019Q2

REPORT INFORMATION
  Report Type: Spontaneous
  Country: US (occurrence: US)
  Receive Date: 20190424
  Receipt Date: 20190424
  Transmission Date: 20190711
  Serious: No
  Sender: FDA-Public Use
  Company Number: US-GLENMARK PHARMACEUTICALS-2019GMK040458

PATIENT

DRUGS (8)
  1. COLESEVELAM HYDROCHLORIDE FOR ORAL SUSUPENSION [Suspect]
     Active Substance: COLESEVELAM HYDROCHLORIDE
     Indication: BLOOD CHOLESTEROL INCREASED
     Dosage: 3.75 MG, OD (ONE PACKET IN THE MORNING)
     Route: 048
  2. COLESEVELAM HYDROCHLORIDE FOR ORAL SUSUPENSION [Suspect]
     Active Substance: COLESEVELAM HYDROCHLORIDE
     Indication: HYPERTENSION
  3. LOTREL [Concomitant]
     Active Substance: AMLODIPINE BESYLATE\BENAZEPRIL HYDROCHLORIDE
     Indication: PRODUCT USED FOR UNKNOWN INDICATION
     Dosage: 5/20MG, OD
     Route: 065
  4. OMEPRAZOLE. [Concomitant]
     Active Substance: OMEPRAZOLE
     Indication: PRODUCT USED FOR UNKNOWN INDICATION
     Dosage: 40 MG, OD
     Route: 065
  5. COLESEVELAM HYDROCHLORIDE FOR ORAL SUSUPENSION [Suspect]
     Active Substance: COLESEVELAM HYDROCHLORIDE
     Indication: DIABETES PROPHYLAXIS
  6. TOPROL XL [Concomitant]
     Active Substance: METOPROLOL SUCCINATE
     Indication: PRODUCT USED FOR UNKNOWN INDICATION
     Dosage: 75 MG, QD (50 MG 1 AND HALF A DAY)
     Route: 065
  7. DAPSONE. [Concomitant]
     Active Substance: DAPSONE
     Indication: PRODUCT USED FOR UNKNOWN INDICATION
     Dosage: 45 MG, BID
     Route: 065
  8. BABY ASPIRIN [Concomitant]
     Active Substance: ASPIRIN
     Indication: PRODUCT USED FOR UNKNOWN INDICATION
     Dosage: UNK
     Route: 065

REACTIONS (6)
  - Product physical consistency issue [Unknown]
  - Product substitution issue [Unknown]
  - Product solubility abnormal [Unknown]
  - Product taste abnormal [Unknown]
  - Product dispensing error [Unknown]
  - Taste disorder [Not Recovered/Not Resolved]
